FAERS Safety Report 5285288-X (Version None)
Quarter: 2007Q1

REPORT INFORMATION
  Report Type: 
  Country: None (occurrence: None)
  Receive Date: 20070328
  Receipt Date: 20070314
  Transmission Date: 20070707
  Serious: Yes (Death, Other)
  Sender: FDA-Public Use
  Company Number: 2007US000534

PATIENT
  Age: 47 Year
  Sex: Male

DRUGS (4)
  1. PROGRAF [Suspect]
     Indication: LIVER TRANSPLANT
  2. MYCOPHENOLATE MOFETIL [Suspect]
     Indication: LIVER TRANSPLANT
  3. CORTICOSTEROIDS [Suspect]
     Indication: LIVER TRANSPLANT
  4. BENZNIDAZOLE(BENZNIDAZOLE) [Suspect]
     Indication: PROPHYLAXIS
     Dosage: 200 MG BID ORAL
     Route: 048

REACTIONS (5)
  - ANAEMIA [None]
  - IMPAIRED GASTRIC EMPTYING [None]
  - PNEUMONIA [None]
  - PULMONARY TUBERCULOSIS [None]
  - SEPSIS [None]
